FAERS Safety Report 5958033-X (Version None)
Quarter: 2008Q4

REPORT INFORMATION
  Report Type: 
  Country: None (occurrence: None)
  Receive Date: 20081119
  Receipt Date: 20081113
  Transmission Date: 20090506
  Serious: Yes (Hospitalization)
  Sender: FDA-Public Use
  Company Number: GB-ABBOTT-08P-167-0487345-00

PATIENT
  Age: 16 Year
  Sex: Female

DRUGS (1)
  1. VALPROATE SODIUM [Suspect]
     Indication: EPILEPSY
     Dosage: 900 MG DAILY
     Route: 048

REACTIONS (2)
  - GASTROENTERITIS [None]
  - MEDICATION RESIDUE [None]
